FAERS Safety Report 14524631 (Version 2)
Quarter: 2019Q4

REPORT INFORMATION
  Report Type: Other
  Country: DE (occurrence: DE)
  Receive Date: 20180213
  Receipt Date: 20191022
  Transmission Date: 20200122
  Serious: Yes (Life-Threatening, Hospitalization)
  Sender: FDA-Public Use
  Company Number: DE-GLENMARK PHARMACEUTICALS-2018GMK031646

PATIENT

DRUGS (4)
  1. ALLOPURINOL. [Concomitant]
     Active Substance: ALLOPURINOL
     Indication: HYPERURICAEMIA
     Dosage: 300 MG, OD (300 MG MILLIGRAM EVERY DAY)
     Route: 048
  2. MABTHERA [Suspect]
     Active Substance: RITUXIMAB
     Indication: NON-HODGKIN^S LYMPHOMA
     Dosage: 375 MG/M2 (IN TOTAL)
     Route: 042
  3. COTRIM [Concomitant]
     Active Substance: SULFAMETHOXAZOLE\TRIMETHOPRIM
     Indication: B-CELL DEPLETION THERAPY
     Dosage: 2 DF (EVERY 2 WEEK)
     Route: 048
  4. BENDAMUSTINE [Suspect]
     Active Substance: BENDAMUSTINE
     Indication: NON-HODGKIN^S LYMPHOMA
     Dosage: FORMULATION: SOLUTION FOR INFUSION; 180 MG/M2 (IN TOTAL)
     Route: 042

REACTIONS (6)
  - Herpes simplex [Not Recovered/Not Resolved]
  - Angioedema [Recovering/Resolving]
  - Pancytopenia [Recovering/Resolving]
  - Rash [Recovering/Resolving]
  - Anaphylactic reaction [Recovering/Resolving]
  - Capillary leak syndrome [Recovering/Resolving]

NARRATIVE: CASE EVENT DATE: 20170516
